FAERS Safety Report 7234322-6 (Version None)
Quarter: 2011Q1

REPORT INFORMATION
  Report Type: 
  Country: None (occurrence: None)
  Receive Date: 20110119
  Receipt Date: 20110112
  Transmission Date: 20110831
  Serious: Yes (Other)
  Sender: FDA-Public Use
  Company Number: JP-PFIZER INC-2011008258

PATIENT
  Age: 71 Year
  Sex: Female

DRUGS (2)
  1. BLOPRESS [Concomitant]
     Indication: HYPERTENSION
     Dosage: UNK
     Route: 048
  2. LYRICA [Suspect]
     Indication: POST HERPETIC NEURALGIA
     Dosage: 150 MG, DAILY
     Route: 048
     Dates: start: 20101225, end: 20101228

REACTIONS (1)
  - BLOOD PRESSURE INCREASED [None]
